FAERS Safety Report 13418203 (Version 1)
Quarter: 2017Q2

REPORT INFORMATION
  Report Type: Spontaneous
  Country: US (occurrence: US)
  Receive Date: 20170407
  Receipt Date: 20170407
  Transmission Date: 20170830
  Serious: No
  Sender: FDA-Public Use
  Company Number: US-PRINSTON PHARMACEUTICAL INC.-2016PRN00151

PATIENT
  Age: 44 Year
  Sex: Male
  Weight: 65.76 kg

DRUGS (3)
  1. UNKNOWN BLOOD PRESSURE MEDICATIONS (2) [Concomitant]
     Dosage: UNK
  2. UNKNOWN GOUT MEDICATION (1) [Concomitant]
  3. BENAZEPRIL HCL TABLETS USP 20 MG [Suspect]
     Active Substance: BENAZEPRIL HYDROCHLORIDE
     Indication: HYPERTENSION
     Dosage: 20 MG, 1X/DAY AT NIGHT
     Route: 048
     Dates: start: 201606

REACTIONS (2)
  - Product substitution issue [Not Recovered/Not Resolved]
  - Gout [Recovering/Resolving]

NARRATIVE: CASE EVENT DATE: 201606
